FAERS Safety Report 18068677 (Version 2)
Quarter: 2021Q2

REPORT INFORMATION
  Report Type: Spontaneous
  Country: US (occurrence: US)
  Receive Date: 20200724
  Receipt Date: 20210407
  Transmission Date: 20210717
  Serious: Yes (Other)
  Sender: FDA-Public Use
  Company Number: US-GILEAD-2020-0485482

PATIENT
  Age: 33 Year
  Sex: Female

DRUGS (18)
  1. COMBIVIR [Concomitant]
     Active Substance: LAMIVUDINE\ZIDOVUDINE
  2. NORVIR [Concomitant]
     Active Substance: RITONAVIR
  3. LISINOPRIL. [Concomitant]
     Active Substance: LISINOPRIL
  4. TRUVADA [Suspect]
     Active Substance: EMTRICITABINE\TENOFOVIR DISOPROXIL FUMARATE
     Indication: HIV INFECTION
     Dosage: UNK
     Route: 065
     Dates: start: 200411, end: 2015
  5. EVOTAZ [Concomitant]
     Active Substance: ATAZANAVIR SULFATE\COBICISTAT
  6. ALBUTEROL [SALBUTAMOL] [Concomitant]
     Active Substance: ALBUTEROL
  7. EDURANT [Concomitant]
     Active Substance: RILPIVIRINE HYDROCHLORIDE
  8. NOVOLOG [Concomitant]
     Active Substance: INSULIN ASPART
  9. DOXYCYCLINE. [Concomitant]
     Active Substance: DOXYCYCLINE
  10. VIREAD [Suspect]
     Active Substance: TENOFOVIR DISOPROXIL FUMARATE
     Indication: HIV INFECTION
     Dosage: UNK
     Route: 065
     Dates: start: 2004, end: 2019
  11. NOVOLIN N [Concomitant]
     Active Substance: INSULIN HUMAN
  12. INSULIN [Concomitant]
     Active Substance: INSULIN NOS
  13. CRIXIVAN [Concomitant]
     Active Substance: INDINAVIR SULFATE
  14. EPIVIR [Concomitant]
     Active Substance: LAMIVUDINE
  15. TIVICAY [Concomitant]
     Active Substance: DOLUTEGRAVIR SODIUM
  16. KALETRA [Concomitant]
     Active Substance: LOPINAVIR\RITONAVIR
  17. RETROVIR [Concomitant]
     Active Substance: ZIDOVUDINE
  18. JULUCA [Concomitant]
     Active Substance: DOLUTEGRAVIR SODIUM\RILPIVIRINE HYDROCHLORIDE

REACTIONS (7)
  - Hypertensive nephropathy [Unknown]
  - Emotional distress [Not Recovered/Not Resolved]
  - Osteomalacia [Not Recovered/Not Resolved]
  - Renal failure [Not Recovered/Not Resolved]
  - End stage renal disease [Not Recovered/Not Resolved]
  - Chronic kidney disease [Not Recovered/Not Resolved]
  - Pain [Not Recovered/Not Resolved]

NARRATIVE: CASE EVENT DATE: 20070608
